FAERS Safety Report 4290133-5 (Version None)
Quarter: 2004Q1

REPORT INFORMATION
  Report Type: 
  Country: None (occurrence: None)
  Receive Date: 20040209
  Receipt Date: 20030108
  Transmission Date: 20041129
  Serious: Yes (Hospitalization)
  Sender: FDA-Public Use
  Company Number: M2004.6766

PATIENT
  Age: 86 Year
  Sex: Male

DRUGS (3)
  1. AUGMENTIN '500' [Suspect]
     Indication: PROPHYLAXIS
     Dosage: 3 G, TDS, 2 DAYS, I.V.
     Route: 042
  2. AUGMENTIN '500' [Suspect]
     Indication: SKIN GRAFT
     Dosage: 3 G, TDS, 2 DAYS, I.V.
     Route: 042
  3. CLAVULANIC ACID [Concomitant]

REACTIONS (5)
  - CHEYNE-STOKES RESPIRATION [None]
  - COMA [None]
  - CONFUSIONAL STATE [None]
  - MENINGITIS ASEPTIC [None]
  - PLEOCYTOSIS [None]
